FAERS Safety Report 4498054-X (Version None)
Quarter: 2004Q4

REPORT INFORMATION
  Report Type: 
  Country: None (occurrence: None)
  Receive Date: 20041109
  Receipt Date: 20041109
  Transmission Date: 20050328
  Serious: Yes (Death, Hospitalization)
  Sender: FDA-Public Use
  Company Number: None

PATIENT
  Sex: Male
  Weight: 68.0396 kg

DRUGS (13)
  1. AMIODARONE    200MG [Suspect]
     Indication: ATRIAL FIBRILLATION
     Dosage: 200MG   DAILY   ORAL
     Route: 048
     Dates: start: 20040227, end: 20040719
  2. FUROSEMIDE [Concomitant]
  3. COREG [Concomitant]
  4. DOCUSATE [Concomitant]
  5. PREVACID [Concomitant]
  6. ASPIRIN [Concomitant]
  7. CITRACAL-D [Concomitant]
  8. DIGOXIN [Concomitant]
  9. LISINOPRIL [Concomitant]
  10. M.V.I. [Concomitant]
  11. GLYCERIN SUPP [Concomitant]
  12. MILK OF MAG [Concomitant]
  13. ROCALTROL [Concomitant]

REACTIONS (5)
  - HYPOXIA [None]
  - PNEUMONIA [None]
  - PNEUMONITIS [None]
  - THERAPY NON-RESPONDER [None]
  - WHITE BLOOD CELL COUNT DECREASED [None]
